FAERS Safety Report 9276527 (Version 1)
Quarter: 2012Q4

REPORT INFORMATION
  Report Type: Spontaneous
  Country: TR (occurrence: None)
  Receive Date: 20121109
  Receipt Date: 20121109
  Transmission Date: 20130627
  Serious: Yes (Other)
  Sender: FDA-Public Use
  Company Number: 2011S1000900

PATIENT
  Age: 33 Year
  Weight: 90 kg

DRUGS (3)
  1. CUBICIN [Suspect]
     Indication: BACTEREMIA
     Route: 042
     Dates: start: 20111128, end: 20111209
  2. FRAXIPARIN [Concomitant]
  3. COUMADIN [Concomitant]

REACTIONS (4)
  - Hepatotoxicity [None]
  - Alanine aminotransferase increased [None]
  - Aspartate aminotransferase increased [None]
  - Incorrect drug administration rate [None]
